FAERS Safety Report 8918827 (Version 1)
Quarter: 2012Q4

REPORT INFORMATION
  Report Type: Spontaneous
  Country: US (occurrence: None)
  Receive Date: 20121115
  Receipt Date: 20121115
  Transmission Date: 20130627
  Serious: Yes (Other)
  Sender: FDA-Public Use
  Company Number: None

PATIENT
  Age: 25 Year
  Sex: Female
  Weight: 67.1 kg

DRUGS (1)
  1. IRON DEXTRAN [Suspect]
     Route: 042

REACTIONS (8)
  - Infusion related reaction [None]
  - Feeling abnormal [None]
  - Convulsion [None]
  - Feeling hot [None]
  - Chest discomfort [None]
  - Feeling abnormal [None]
  - Oxygen saturation decreased [None]
  - Restless legs syndrome [None]
